FAERS Safety Report 9648963 (Version 1)
Quarter: 2013Q4

REPORT INFORMATION
  Report Type: Spontaneous
  Country: US (occurrence: US)
  Receive Date: 20131028
  Receipt Date: 20131028
  Transmission Date: 20140711
  Serious: Yes (Other)
  Sender: FDA-Public Use
  Company Number: US-PFIZER INC-2013305160

PATIENT
  Age: 89 Year
  Sex: Female
  Weight: 31.75 kg

DRUGS (3)
  1. NORVASC [Suspect]
     Indication: HYPERTENSION
     Dosage: 10 MG, 1X/DAY
     Route: 048
  2. LOSARTAN [Concomitant]
     Dosage: UNK
  3. VASOTEC [Concomitant]
     Dosage: UNK

REACTIONS (1)
  - Sarcoma [Recovered/Resolved]
